FAERS Safety Report 5088291-8 (Version None)
Quarter: 2006Q3

REPORT INFORMATION
  Report Type: 
  Country: None (occurrence: None)
  Receive Date: 20060821
  Receipt Date: 20060803
  Transmission Date: 20061208
  Serious: Yes (Other)
  Sender: FDA-Public Use
  Company Number: CHPA2006US07607

PATIENT
  Age: 83 Year
  Sex: Female
  Weight: 36.7 kg

DRUGS (3)
  1. EXCEDRIN MIGRAINE (NCH) (CAFFEINE CITRATE, ACETYLSALICYLIC ACID,  ACET [Suspect]
     Indication: MIGRAINE
     Dosage: ORAL; 2 DF, BID, ORAL
     Route: 048
     Dates: start: 20060601
  2. EXCEDRIN MIGRAINE (NCH) (CAFFEINE CITRATE, ACETYLSALICYLIC ACID,  ACET [Suspect]
     Indication: MIGRAINE
     Dosage: ORAL; 2 DF, BID, ORAL
     Route: 048
     Dates: start: 20060803
  3. MIDRIN (DICHLORALPHENAZONE, ISOMETHEPTENE, PARACETAMOL) [Concomitant]

REACTIONS (4)
  - DRUG ABUSER [None]
  - DYSPEPSIA [None]
  - OVERDOSE [None]
  - POOR QUALITY DRUG ADMINISTERED [None]
